FAERS Safety Report 14200565 (Version 1)
Quarter: 2017Q4

REPORT INFORMATION
  Report Type: Spontaneous
  Country: US (occurrence: US)
  Receive Date: 20171117
  Receipt Date: 20171117
  Transmission Date: 20180321
  Serious: Yes (Other)
  Sender: FDA-Public Use
  Company Number: US-NOVOPROD-531783

PATIENT
  Age: 78 Year
  Sex: Male

DRUGS (4)
  1. NOVOLOG [Suspect]
     Active Substance: INSULIN ASPART
     Indication: TYPE 2 DIABETES MELLITUS
     Dosage: SLIDING SCALE
     Route: 058
     Dates: start: 201607
  2. TRESIBA [Concomitant]
     Active Substance: INSULIN DEGLUDEC
     Indication: TYPE 2 DIABETES MELLITUS
     Dosage: QD DURING THE DAY
     Route: 058
     Dates: start: 201611
  3. NOVOLOG [Suspect]
     Active Substance: INSULIN ASPART
     Dosage: 20 U, QD AT NIGHT
     Route: 058
     Dates: start: 201607
  4. NOVOLOG [Suspect]
     Active Substance: INSULIN ASPART
     Dosage: 40 U, QD AT NIGHT
     Route: 058
     Dates: start: 201607

REACTIONS (3)
  - Blood glucose decreased [Recovered/Resolved]
  - Inappropriate schedule of drug administration [Unknown]
  - Blood glucose decreased [Recovered/Resolved]

NARRATIVE: CASE EVENT DATE: 20170110
